FAERS Safety Report 6170706-5 (Version None)
Quarter: 2009Q2

REPORT INFORMATION
  Report Type: 
  Country: None (occurrence: None)
  Receive Date: 20090428
  Receipt Date: 20090421
  Transmission Date: 20091009
  Serious: Yes (Death, Other)
  Sender: FDA-Public Use
  Company Number: FR-ELI_LILLY_AND_COMPANY-FR200904005924

PATIENT
  Sex: Female
  Weight: 55 kg

DRUGS (12)
  1. DROTRECOGIN ALFA (ACTIVATED) [Suspect]
     Indication: SEPSIS
     Dosage: 24 UG/KG/HR
     Route: 042
     Dates: start: 20060110
  2. CORTANCYL [Concomitant]
     Indication: SYSTEMIC LUPUS ERYTHEMATOSUS
  3. IMUREL [Concomitant]
     Indication: SYSTEMIC LUPUS ERYTHEMATOSUS
  4. HYDROCORTISONE HEMISUCCINATE [Concomitant]
     Indication: SEPTIC SHOCK
     Dosage: 50 MG, 4/D
     Dates: start: 20060110
  5. NORADRENALINE [Concomitant]
  6. CASPOFUNGIN [Concomitant]
  7. DIPRIVAN [Concomitant]
     Indication: SEDATION
     Dates: start: 20060116
  8. FENTANYL [Concomitant]
     Indication: SEDATION
     Dates: start: 20060118
  9. PHOCYTAN [Concomitant]
     Indication: HYPOPHOSPHATAEMIA
     Dates: start: 20060111
  10. VECTARION [Concomitant]
     Indication: LUNG DISORDER
     Dates: start: 20060119, end: 20060119
  11. PLATELETS [Concomitant]
     Indication: THROMBOCYTOPENIA
     Dates: start: 20060117, end: 20060121
  12. RED BLOOD CELLS [Concomitant]
     Indication: ANAEMIA
     Dates: start: 20060117, end: 20060117

REACTIONS (2)
  - PERIPHERAL ISCHAEMIA [None]
  - SEPTIC SHOCK [None]
